FAERS Safety Report 17253966 (Version 6)
Quarter: 2020Q1

REPORT INFORMATION
  Report Type: Report from Study
  Country: JP (occurrence: JP)
  Receive Date: 20200109
  Receipt Date: 20200318
  Transmission Date: 20200409
  Serious: Yes (Hospitalization)
  Sender: FDA-Public Use
  Company Number: JP-JNJFOC-20200101842

PATIENT
  Age: 69 Year
  Sex: Male
  Weight: 57 kg

DRUGS (12)
  1. FELBINAC [Concomitant]
     Active Substance: FELBINAC
     Indication: DRY SKIN
     Dosage: 1 TABLESPOON AS NEEDED
     Route: 061
  2. SITAGLIPTIN PHOSPHATE [Concomitant]
     Active Substance: SITAGLIPTIN PHOSPHATE
     Indication: HYPERGLYCAEMIA
     Route: 048
     Dates: start: 20191228
  3. JNJ-63723283 [Suspect]
     Active Substance: CETRELIMAB
     Indication: CHOLANGIOCARCINOMA
     Route: 042
     Dates: start: 20191129
  4. ERDAFITINIB. [Suspect]
     Active Substance: ERDAFITINIB
     Indication: CHOLANGIOCARCINOMA
     Route: 048
     Dates: start: 20191129, end: 20191224
  5. ELDECALCITOL [Concomitant]
     Active Substance: ELDECALCITOL
     Indication: OSTEOPOROSIS
     Route: 048
  6. PANCRELIPASE. [Concomitant]
     Active Substance: PANCRELIPASE
     Indication: GASTRITIS PROPHYLAXIS
     Route: 048
  7. FELBINAC [Concomitant]
     Active Substance: FELBINAC
     Indication: INTERVERTEBRAL DISC PROTRUSION
  8. LORNOXICAM [Concomitant]
     Active Substance: LORNOXICAM
     Indication: INTERVERTEBRAL DISC PROTRUSION
     Route: 048
  9. VONOPRAZAN FUMARATE [Concomitant]
     Active Substance: VONOPRAZAN FUMURATE
     Indication: GASTRITIS PROPHYLAXIS
     Route: 048
     Dates: start: 20191228
  10. OXYCODONE HYDROCHLORIDE. [Concomitant]
     Active Substance: OXYCODONE HYDROCHLORIDE
     Indication: INTERVERTEBRAL DISC PROTRUSION
     Route: 042
     Dates: start: 20191230, end: 20200109
  11. PREGABALIN. [Concomitant]
     Active Substance: PREGABALIN
     Indication: INTERVERTEBRAL DISC PROTRUSION
     Route: 048
  12. MAGMITT [Concomitant]
     Active Substance: MAGNESIUM OXIDE
     Indication: CONSTIPATION PROPHYLAXIS
     Dosage: AS NEEDED
     Route: 048
     Dates: start: 20191202

REACTIONS (2)
  - Stevens-Johnson syndrome [Recovering/Resolving]
  - Haemorrhage intracranial [Recovering/Resolving]

NARRATIVE: CASE EVENT DATE: 20191224
